FAERS Safety Report 14909227 (Version 1)
Quarter: 2018Q2

REPORT INFORMATION
  Report Type: Spontaneous
  Country: AU (occurrence: AU)
  Receive Date: 20180517
  Receipt Date: 20180517
  Transmission Date: 20180711
  Serious: Yes (Congenital Anomaly)
  Sender: FDA-Public Use
  Company Number: AU-NOVOPROD-599220

PATIENT
  Sex: Female

DRUGS (1)
  1. SAXENDA [Suspect]
     Active Substance: LIRAGLUTIDE
     Indication: WEIGHT CONTROL
     Dosage: UNK
     Route: 064

REACTIONS (6)
  - Limb hypoplasia congenital [Unknown]
  - Congenital aortic valve incompetence [Unknown]
  - Syndactyly [Unknown]
  - Foetal exposure during pregnancy [Recovered/Resolved]
  - Hemihypertrophy [Unknown]
  - Brachydactyly [Unknown]

NARRATIVE: CASE EVENT DATE: 20170117
